FAERS Safety Report 25166029 (Version 2)
Quarter: 2025Q2

REPORT INFORMATION
  Report Type: Spontaneous
  Country: BE (occurrence: BE)
  Receive Date: 20250407
  Receipt Date: 20250426
  Transmission Date: 20250717
  Serious: Yes (Life-Threatening, Hospitalization, Other)
  Sender: AUROBINDO
  Company Number: BE-MLMSERVICE-20250317-PI449407-00270-1

PATIENT
  Age: 45 Year
  Sex: Female

DRUGS (10)
  1. CARBOPLATIN [Suspect]
     Active Substance: CARBOPLATIN
     Indication: Triple negative breast cancer
     Dosage: EVERY WEEK
     Route: 065
     Dates: start: 202212, end: 202302
  2. CARBOPLATIN [Suspect]
     Active Substance: CARBOPLATIN
     Dosage: EVERY WEEK
     Route: 065
     Dates: start: 202302, end: 2023
  3. EPIRUBICIN [Suspect]
     Active Substance: EPIRUBICIN
     Indication: Triple negative breast cancer
     Route: 065
     Dates: start: 2023, end: 2023
  4. PACLITAXEL [Suspect]
     Active Substance: PACLITAXEL
     Indication: Triple negative breast cancer
     Dosage: EVERY WEEK
     Route: 065
     Dates: start: 202212, end: 202302
  5. PACLITAXEL [Suspect]
     Active Substance: PACLITAXEL
     Dosage: EVERY WEEK
     Route: 065
     Dates: start: 202302, end: 2023
  6. METHYLPREDNISOLONE [Suspect]
     Active Substance: METHYLPREDNISOLONE
     Indication: Colitis
     Dosage: GRADUALLY TAPERED
     Route: 042
     Dates: start: 202302
  7. INFLIXIMAB [Suspect]
     Active Substance: INFLIXIMAB
     Indication: Colitis
     Route: 042
     Dates: start: 202302
  8. PEMBROLIZUMAB [Suspect]
     Active Substance: PEMBROLIZUMAB
     Indication: Triple negative breast cancer
     Route: 065
     Dates: start: 202212, end: 202302
  9. CYCLOPHOSPHAMIDE [Suspect]
     Active Substance: CYCLOPHOSPHAMIDE
     Indication: Triple negative breast cancer
     Route: 065
     Dates: start: 2023, end: 2023
  10. AMPHOTERICIN B [Concomitant]
     Active Substance: AMPHOTERICIN B
     Indication: Product used for unknown indication
     Route: 065

REACTIONS (12)
  - Myocarditis infectious [Not Recovered/Not Resolved]
  - Fungal endocarditis [Not Recovered/Not Resolved]
  - Aspergillus infection [Not Recovered/Not Resolved]
  - Hemiplegia [Not Recovered/Not Resolved]
  - Nervous system disorder [Not Recovered/Not Resolved]
  - Dysphagia [Not Recovered/Not Resolved]
  - Muscle atrophy [Not Recovered/Not Resolved]
  - Infection [Not Recovered/Not Resolved]
  - Bronchopulmonary aspergillosis [Not Recovered/Not Resolved]
  - Infectious thyroiditis [Not Recovered/Not Resolved]
  - Fungal myositis [Not Recovered/Not Resolved]
  - Immune-mediated enterocolitis [Recovered/Resolved]

NARRATIVE: CASE EVENT DATE: 20230201
